FAERS Safety Report 5080882-3 (Version None)
Quarter: 2006Q3

REPORT INFORMATION
  Report Type: 
  Country: None (occurrence: None)
  Receive Date: 20060810
  Receipt Date: 20060803
  Transmission Date: 20061208
  Serious: Yes (Hospitalization)
  Sender: FDA-Public Use
  Company Number: 2006BH012092

PATIENT
  Age: 63 Year
  Sex: Male

DRUGS (10)
  1. SUPRANE [Suspect]
     Indication: GENERAL ANAESTHESIA
     Dosage: 1; ONCE; INH
     Route: 055
     Dates: start: 20060411, end: 20060411
  2. KETOPROFEN [Suspect]
     Indication: DRUG USE FOR UNKNOWN INDICATION
     Dosage: PO
     Route: 048
     Dates: start: 20060414, end: 20060503
  3. DIPRIVAN [Suspect]
     Indication: GENERAL ANAESTHESIA
  4. ULTIVA [Suspect]
     Indication: GENERAL ANAESTHESIA
     Dates: start: 20060411, end: 20060411
  5. XYLOCAINE [Suspect]
     Indication: GENERAL ANAESTHESIA
     Dates: start: 20060411, end: 20060411
  6. VASTAREL ^BIOPHARMA^ [Concomitant]
  7. AUGMENTIN /SCH/ [Concomitant]
  8. HYZAAR [Concomitant]
  9. TAHOR [Concomitant]
  10. ZOLPIDEM TARTRATE [Concomitant]

REACTIONS (7)
  - ALANINE AMINOTRANSFERASE INCREASED [None]
  - ASPARTATE AMINOTRANSFERASE INCREASED [None]
  - ASTHENIA [None]
  - CHOLESTASIS [None]
  - EAR INFECTION [None]
  - JAUNDICE [None]
  - SKIN DISCOLOURATION [None]
